FAERS Safety Report 25622266 (Version 1)
Quarter: 2025Q3

REPORT INFORMATION
  Report Type: Spontaneous
  Country: GB (occurrence: GB)
  Receive Date: 20250730
  Receipt Date: 20250730
  Transmission Date: 20251021
  Serious: Yes (Disabling)
  Sender: MYLAN
  Company Number: None

PATIENT
  Sex: Female

DRUGS (8)
  1. EPLERENONE [Suspect]
     Active Substance: EPLERENONE
     Indication: Gitelman^s syndrome
     Dosage: 25 MILLIGRAM, QD (25 MG ONCE A DAY)
  2. EPLERENONE [Suspect]
     Active Substance: EPLERENONE
     Dosage: 25 MILLIGRAM, QD (25 MG ONCE A DAY)
     Route: 065
  3. EPLERENONE [Suspect]
     Active Substance: EPLERENONE
     Dosage: 25 MILLIGRAM, QD (25 MG ONCE A DAY)
     Route: 065
  4. EPLERENONE [Suspect]
     Active Substance: EPLERENONE
     Dosage: 25 MILLIGRAM, QD (25 MG ONCE A DAY)
  5. INSPRA [Suspect]
     Active Substance: EPLERENONE
     Indication: Gitelman^s syndrome
     Dosage: 25 MILLIGRAM, QD (25 MG ONCE A DAY)
  6. INSPRA [Suspect]
     Active Substance: EPLERENONE
     Dosage: 25 MILLIGRAM, QD (25 MG ONCE A DAY)
     Route: 065
  7. INSPRA [Suspect]
     Active Substance: EPLERENONE
     Dosage: 25 MILLIGRAM, QD (25 MG ONCE A DAY)
     Route: 065
  8. INSPRA [Suspect]
     Active Substance: EPLERENONE
     Dosage: 25 MILLIGRAM, QD (25 MG ONCE A DAY)

REACTIONS (3)
  - Cough [Recovered/Resolved]
  - Abdominal distension [Recovering/Resolving]
  - Peripheral swelling [Recovering/Resolving]
